FAERS Safety Report 19889411 (Version 1)
Quarter: 2021Q3

REPORT INFORMATION
  Report Type: Spontaneous
  Country: US (occurrence: US)
  Receive Date: 20210927
  Receipt Date: 20210927
  Transmission Date: 20211014
  Serious: Yes (Other)
  Sender: FDA-Public Use
  Company Number: US-ASTELLAS-2021US027322

PATIENT
  Sex: Male

DRUGS (1)
  1. PADCEV [Suspect]
     Active Substance: ENFORTUMAB VEDOTIN-EJFV
     Indication: PRODUCT USED FOR UNKNOWN INDICATION
     Dosage: UNK UNK, UNKNOWN FREQ.(3 WEEKS ON, 1 WEEK OFF)
     Route: 065

REACTIONS (8)
  - Neuropathy peripheral [Unknown]
  - Alopecia [Unknown]
  - Blood test abnormal [Unknown]
  - Swelling face [Unknown]
  - Asthenia [Unknown]
  - Weight decreased [Unknown]
  - Decreased appetite [Unknown]
  - Impaired work ability [Unknown]

NARRATIVE: CASE EVENT DATE: 2021
